FAERS Safety Report 4337661-1 (Version None)
Quarter: 2004Q1

REPORT INFORMATION
  Report Type: 
  Country: None (occurrence: None)
  Receive Date: 20040329
  Receipt Date: 20031224
  Transmission Date: 20041129
  Serious: No
  Sender: FDA-Public Use
  Company Number: USA031255404

PATIENT
  Age: 9 Year
  Sex: Male
  Weight: 30 kg

DRUGS (1)
  1. STRATTERA [Suspect]
     Indication: ATTENTION DEFICIT/HYPERACTIVITY DISORDER
     Dosage: 40 MG/DAY
     Dates: start: 20031101, end: 20031220

REACTIONS (5)
  - DECREASED APPETITE [None]
  - DRUG EFFECT DECREASED [None]
  - DYSURIA [None]
  - INFLUENZA [None]
  - PYREXIA [None]
